FAERS Safety Report 20079752 (Version 1)
Quarter: 2021Q4

REPORT INFORMATION
  Report Type: Spontaneous
  Country: MY (occurrence: MY)
  Receive Date: 20211117
  Receipt Date: 20211117
  Transmission Date: 20220303
  Serious: Yes (Hospitalization, Other)
  Sender: FDA-Public Use
  Company Number: MY-LUPIN PHARMACEUTICALS INC.-2021-22410

PATIENT
  Age: 25 Year
  Sex: Male

DRUGS (7)
  1. METHYLPREDNISOLONE [Suspect]
     Active Substance: METHYLPREDNISOLONE
     Indication: Sympathetic ophthalmia
     Dosage: 1 GRAM, QD
     Route: 042
     Dates: start: 2019, end: 2019
  2. DEXAMETHASONE [Suspect]
     Active Substance: DEXAMETHASONE
     Indication: Sympathetic ophthalmia
     Dosage: 0.1 PERCENT (EVERY TWO HOURS)
     Route: 061
     Dates: start: 2019, end: 2019
  3. DEXAMETHASONE [Suspect]
     Active Substance: DEXAMETHASONE
     Dosage: 0.1 PERCENT
     Route: 061
     Dates: start: 2019
  4. PREDNISOLONE [Suspect]
     Active Substance: PREDNISOLONE
     Indication: Sympathetic ophthalmia
     Dosage: 50 MILLIGRAM, QD (1 MG/KG/DAY)
     Route: 048
     Dates: start: 2019, end: 2019
  5. PREDNISOLONE [Suspect]
     Active Substance: PREDNISOLONE
     Dosage: 10 MILLIGRAM, QD
     Route: 048
     Dates: start: 2019
  6. AZATHIOPRINE [Suspect]
     Active Substance: AZATHIOPRINE
     Indication: Sympathetic ophthalmia
     Dosage: 50 MILLIGRAM (2 MG/KG/DAY)
     Route: 048
     Dates: start: 2019
  7. ATROPINE [Concomitant]
     Active Substance: ATROPINE
     Indication: Sympathetic ophthalmia
     Dosage: 1 PERCENT, TID
     Route: 061
     Dates: start: 2019

REACTIONS (4)
  - Intraocular pressure increased [Unknown]
  - Cataract subcapsular [Unknown]
  - Tuberculosis [Recovered/Resolved]
  - Pleural effusion [Recovered/Resolved]

NARRATIVE: CASE EVENT DATE: 20190101
